FAERS Safety Report 7951267-4 (Version None)
Quarter: 2011Q4

REPORT INFORMATION
  Report Type: 
  Country: None (occurrence: None)
  Receive Date: 20111201
  Receipt Date: 20111121
  Transmission Date: 20120403
  Serious: Yes (Hospitalization)
  Sender: FDA-Public Use
  Company Number: US-JNJFOC-20111105306

PATIENT
  Sex: Male
  Weight: 68.04 kg

DRUGS (5)
  1. ANTIBIOTICS [Concomitant]
     Indication: INFLAMMATORY BOWEL DISEASE
  2. FLINSTONES MULTIVITAMIN [Concomitant]
  3. REMICADE [Suspect]
     Indication: CROHN'S DISEASE
     Route: 042
     Dates: start: 20080421, end: 20080919
  4. TACROLIMUS [Concomitant]
  5. PRILOSEC [Concomitant]

REACTIONS (6)
  - COLITIS [None]
  - CROHN'S DISEASE [None]
  - DEHYDRATION [None]
  - CONDITION AGGRAVATED [None]
  - HERPES OESOPHAGITIS [None]
  - DRUG INEFFECTIVE [None]
